FAERS Safety Report 7945497-5 (Version None)
Quarter: 2011Q4

REPORT INFORMATION
  Report Type: 
  Country: None (occurrence: None)
  Receive Date: 20111129
  Receipt Date: 20111128
  Transmission Date: 20120403
  Serious: Yes (Other)
  Sender: FDA-Public Use
  Company Number: DE-PFIZER INC-2011289213

PATIENT
  Sex: Male
  Weight: 3 kg

DRUGS (3)
  1. ERGOCALCIFEROL [Concomitant]
     Dosage: 500 IU, UNK
  2. CYTOTEC [Suspect]
     Dosage: 200 UG, UNK
     Route: 048
     Dates: start: 20110419
  3. RETROVIR [Concomitant]
     Indication: PROPHYLAXIS AGAINST HIV INFECTION
     Dosage: 0.6 ML, 4X/DAY

REACTIONS (3)
  - SOMNOLENCE [None]
  - PYREXIA [None]
  - TACHYPNOEA [None]
